FAERS Safety Report 20120076 (Version 1)
Quarter: 2021Q4

REPORT INFORMATION
  Report Type: Spontaneous
  Country: CN (occurrence: CN)
  Receive Date: 20211126
  Receipt Date: 20211126
  Transmission Date: 20220303
  Serious: Yes (Other)
  Sender: FDA-Public Use
  Company Number: CN-PFIZER INC-202101577643

PATIENT
  Age: 5 Year
  Sex: Female
  Weight: 18.3 kg

DRUGS (1)
  1. AZITHROMYCIN [Suspect]
     Active Substance: AZITHROMYCIN
     Indication: Pneumonia
     Dosage: 0.160 G, 1X/DAY
     Route: 041
     Dates: start: 20211004, end: 20211006

REACTIONS (4)
  - Electrocardiogram ST segment depression [Recovered/Resolved]
  - Sinus arrhythmia [Recovered/Resolved]
  - Flushing [Recovered/Resolved]
  - Palpitations [Recovered/Resolved]

NARRATIVE: CASE EVENT DATE: 20211006
